FAERS Safety Report 16395510 (Version 6)
Quarter: 2020Q3

REPORT INFORMATION
  Report Type: Spontaneous
  Country: DE (occurrence: DE)
  Receive Date: 20190605
  Receipt Date: 20200928
  Transmission Date: 20201102
  Serious: Yes (Other)
  Sender: FDA-Public Use
  Company Number: DE-BAUSCH-BL-2019-015852

PATIENT
  Age: 50 Year
  Sex: Female

DRUGS (21)
  1. AMITRIPTYLINE [Suspect]
     Active Substance: AMITRIPTYLINE
     Route: 065
  2. RAMIPRIL. [Concomitant]
     Active Substance: RAMIPRIL
  3. CARBAMAZEPINE. [Concomitant]
     Active Substance: CARBAMAZEPINE
     Dosage: 2?0?1
     Dates: start: 20190801
  4. BACLOFENUM [Concomitant]
     Dosage: 15 MG ? 15 MG ? 25 MG
     Route: 048
  5. PANTOPRAZOL [PANTOPRAZOLE] [Concomitant]
     Active Substance: PANTOPRAZOLE
     Indication: PRODUCT USED FOR UNKNOWN INDICATION
  6. OCREVUS [Suspect]
     Active Substance: OCRELIZUMAB
     Dosage: SECOND DOSE
     Route: 042
     Dates: start: 20180517, end: 20180517
  7. BACLOFENUM [Concomitant]
     Indication: PRODUCT USED FOR UNKNOWN INDICATION
  8. DEKRISTOL [Concomitant]
     Active Substance: CHOLECALCIFEROL
     Indication: PRODUCT USED FOR UNKNOWN INDICATION
  9. DICLOFENAC [Suspect]
     Active Substance: DICLOFENAC
     Indication: BACK PAIN
     Route: 065
     Dates: start: 20190122
  10. AMITRIPTYLINE [Suspect]
     Active Substance: AMITRIPTYLINE
     Indication: PRODUCT USED FOR UNKNOWN INDICATION
     Dosage: 0?0?1
     Route: 065
  11. OCREVUS [Suspect]
     Active Substance: OCRELIZUMAB
     Indication: RELAPSING-REMITTING MULTIPLE SCLEROSIS
     Route: 042
     Dates: start: 20180503, end: 20180503
  12. OCREVUS [Suspect]
     Active Substance: OCRELIZUMAB
     Dosage: NEXT DOSE ON 09/JUN/2020
     Route: 042
     Dates: start: 20181106
  13. RAMIPRIL. [Concomitant]
     Active Substance: RAMIPRIL
     Indication: HYPERTENSION
     Dosage: 1?0?1
  14. ASPIRIN. [Concomitant]
     Active Substance: ASPIRIN
     Indication: PRODUCT USED FOR UNKNOWN INDICATION
     Route: 048
  15. CARBAMAZEPINE. [Concomitant]
     Active Substance: CARBAMAZEPINE
     Indication: PRODUCT USED FOR UNKNOWN INDICATION
     Dosage: 1?0?0
     Route: 048
  16. FOLVERLAN [Concomitant]
     Active Substance: FOLIC ACID
     Indication: PRODUCT USED FOR UNKNOWN INDICATION
  17. NOVOPULMON [Concomitant]
     Active Substance: BUDESONIDE
     Indication: PRODUCT USED FOR UNKNOWN INDICATION
     Dosage: 2 HUBS PER DAY
  18. CARBAMAZEPINE. [Concomitant]
     Active Substance: CARBAMAZEPINE
     Dosage: 0?1?0
  19. BACLOFENUM [Concomitant]
     Dosage: 10 MG ? 15 MG ? 25 MG
  20. AMITRIPTYLINE [Suspect]
     Active Substance: AMITRIPTYLINE
     Route: 065
  21. OCREVUS [Suspect]
     Active Substance: OCRELIZUMAB
     Route: 065

REACTIONS (35)
  - Back pain [Recovered/Resolved]
  - Infrapatellar fat pad inflammation [Not Recovered/Not Resolved]
  - Paraesthesia [Recovered/Resolved]
  - Abdominal pain upper [Recovered/Resolved]
  - Nasopharyngitis [Not Recovered/Not Resolved]
  - Fatigue [Recovered/Resolved]
  - Infusion related reaction [Recovered/Resolved]
  - Skin laceration [Recovered/Resolved]
  - Pruritus [Recovered/Resolved]
  - Osteoarthritis [Not Recovered/Not Resolved]
  - Dyspepsia [Unknown]
  - Nausea [Unknown]
  - Infection [Recovered/Resolved]
  - Dizziness [Recovered/Resolved]
  - Multiple sclerosis [Not Recovered/Not Resolved]
  - Gastroenteritis norovirus [Recovered/Resolved]
  - Feeling abnormal [Unknown]
  - Migraine [Not Recovered/Not Resolved]
  - Arthralgia [Not Recovered/Not Resolved]
  - Insomnia [Recovered/Resolved]
  - Urticaria [Not Recovered/Not Resolved]
  - Herpes virus infection [Not Recovered/Not Resolved]
  - Spinal stenosis [Not Recovered/Not Resolved]
  - Cholelithiasis [Recovering/Resolving]
  - Acquired diaphragmatic eventration [Not Recovered/Not Resolved]
  - C-reactive protein increased [Recovering/Resolving]
  - Memory impairment [Recovered/Resolved]
  - Muscle spasticity [Not Recovered/Not Resolved]
  - Chest discomfort [Not Recovered/Not Resolved]
  - Dyspnoea [Not Recovered/Not Resolved]
  - Terminal insomnia [Not Recovered/Not Resolved]
  - Therapeutic product effect decreased [Recovered/Resolved]
  - Headache [Recovered/Resolved]
  - Rash [Recovered/Resolved]
  - Sleep disorder [Not Recovered/Not Resolved]

NARRATIVE: CASE EVENT DATE: 20180503
